FAERS Safety Report 4828263-9 (Version None)
Quarter: 2005Q4

REPORT INFORMATION
  Report Type: 
  Country: None (occurrence: None)
  Receive Date: 20051115
  Receipt Date: 20050930
  Transmission Date: 20060501
  Serious: Yes (Death)
  Sender: FDA-Public Use
  Company Number: 200512808JP

PATIENT
  Age: 62 Year
  Sex: Male
  Weight: 60.6 kg

DRUGS (10)
  1. TAXOTERE [Suspect]
     Indication: HYPOPHARYNGEAL CANCER RECURRENT
     Route: 041
     Dates: start: 20050921, end: 20050921
  2. RANDA [Concomitant]
     Indication: HYPOPHARYNGEAL CANCER RECURRENT
     Route: 041
     Dates: start: 20050921, end: 20050921
  3. FLUOROURACIL [Concomitant]
     Indication: HYPOPHARYNGEAL CANCER RECURRENT
     Route: 041
     Dates: start: 20050921, end: 20050924
  4. PRIMPERAN INJ [Concomitant]
     Indication: ANTIEMETIC SUPPORTIVE CARE
     Route: 041
     Dates: start: 20050921, end: 20050924
  5. NASEA [Concomitant]
     Indication: ANTIEMETIC SUPPORTIVE CARE
     Route: 041
     Dates: start: 20050921, end: 20050921
  6. LASIX [Concomitant]
     Indication: DIURETIC THERAPY
     Route: 041
     Dates: start: 20050921, end: 20050921
  7. MYSLEE [Concomitant]
     Indication: SLEEP DISORDER
     Route: 048
     Dates: start: 20050903, end: 20050927
  8. GASTER [Concomitant]
     Indication: ABDOMINAL PAIN UPPER
     Route: 048
     Dates: start: 20050904, end: 20050928
  9. PAXIL [Concomitant]
     Route: 048
     Dates: start: 20050927, end: 20050927
  10. SILECE [Concomitant]
     Indication: SLEEP DISORDER
     Route: 048
     Dates: start: 20050927, end: 20050927

REACTIONS (9)
  - ABDOMINAL PAIN [None]
  - BLOOD PRESSURE DECREASED [None]
  - CARDIAC ARREST [None]
  - DEPRESSED LEVEL OF CONSCIOUSNESS [None]
  - DIARRHOEA [None]
  - PLATELET COUNT DECREASED [None]
  - PULMONARY HAEMORRHAGE [None]
  - PYREXIA [None]
  - RESPIRATORY FAILURE [None]
